FAERS Safety Report 7059833-8 (Version None)
Quarter: 2010Q4

REPORT INFORMATION
  Report Type: 
  Country: None (occurrence: None)
  Receive Date: 20101025
  Receipt Date: 20101018
  Transmission Date: 20110411
  Serious: Yes (Hospitalization)
  Sender: FDA-Public Use
  Company Number: GB-PFIZER INC-2010132201

PATIENT
  Age: 63 Year
  Sex: Male
  Weight: 87 kg

DRUGS (9)
  1. CHAMPIX [Suspect]
     Indication: SMOKING CESSATION THERAPY
     Dosage: 500 MG, UNK
     Route: 048
     Dates: start: 20100920, end: 20100928
  2. ACETYLSALICYLIC ACID [Concomitant]
     Dosage: UNK
  3. ATORVASTATIN [Concomitant]
     Dosage: UNK
  4. BISOPROLOL [Concomitant]
     Dosage: 5 MG, UNK
  5. ESOMEPRAZOLE [Concomitant]
     Dosage: 20 MG, UNK
  6. FLUOXETINE [Concomitant]
     Dosage: 20 MG, UNK
  7. NITROGLYCERIN [Concomitant]
     Dosage: UNK
  8. OMACOR [Concomitant]
     Dosage: UNK
  9. RAMIPRIL [Concomitant]
     Dosage: 5 MG, UNK

REACTIONS (3)
  - ANGINA UNSTABLE [None]
  - CHEST DISCOMFORT [None]
  - MOUTH ULCERATION [None]
